FAERS Safety Report 8525142-0 (Version None)
Quarter: 2012Q3

REPORT INFORMATION
  Report Type: 
  Country: None (occurrence: None)
  Receive Date: 20120720
  Receipt Date: 20120629
  Transmission Date: 20120928
  Serious: Yes (Death, Hospitalization)
  Sender: FDA-Public Use
  Company Number: TH-BAXTER-2012BAX010065

PATIENT
  Sex: Female

DRUGS (1)
  1. DIANEAL PD-2 PERITONEAL DIALYSIS SOL WITH 1.5 PERCENT DEXT [Suspect]
     Route: 033
     Dates: start: 20111107

REACTIONS (3)
  - HEPATITIS [None]
  - SEPTIC SHOCK [None]
  - FATIGUE [None]
